FAERS Safety Report 10144993 (Version 1)
Quarter: 2014Q2

REPORT INFORMATION
  Report Type: Spontaneous
  Country: US (occurrence: US)
  Receive Date: 20140501
  Receipt Date: 20140501
  Transmission Date: 20141212
  Serious: Yes (Hospitalization, Other)
  Sender: FDA-Public Use
  Company Number: US-AMGEN-USASP2014030847

PATIENT
  Age: 65 Year
  Sex: Female

DRUGS (1)
  1. ENBREL [Suspect]
     Indication: RHEUMATOID ARTHRITIS
     Dosage: 25 MG, 2 TIMES/WK
     Route: 065
     Dates: start: 20001001

REACTIONS (11)
  - Thyroidectomy [Recovered/Resolved]
  - Joint arthroplasty [Recovered/Resolved]
  - Arthrectomy [Recovered/Resolved]
  - Dysphonia [Not Recovered/Not Resolved]
  - Blood calcium decreased [Recovered/Resolved]
  - Aphonia [Recovered/Resolved]
  - Exostosis [Not Recovered/Not Resolved]
  - Dyspnoea exertional [Not Recovered/Not Resolved]
  - Stress [Not Recovered/Not Resolved]
  - Bronchitis [Recovered/Resolved]
  - Injection site bruising [Recovered/Resolved]
